FAERS Safety Report 7183308-9 (Version None)
Quarter: 2010Q4

REPORT INFORMATION
  Report Type: 
  Country: None (occurrence: None)
  Receive Date: 20101222
  Receipt Date: 20100816
  Transmission Date: 20110411
  Serious: No
  Sender: FDA-Public Use
  Company Number: A0877313A

PATIENT
  Sex: Female

DRUGS (1)
  1. FLONASE [Suspect]
     Route: 065
     Dates: start: 20090716

REACTIONS (1)
  - FEELING ABNORMAL [None]
